FAERS Safety Report 4837770-4 (Version None)
Quarter: 2005Q4

REPORT INFORMATION
  Report Type: 
  Country: None (occurrence: None)
  Receive Date: 20051128
  Receipt Date: 20051114
  Transmission Date: 20060501
  Serious: Yes (Hospitalization, Other)
  Sender: FDA-Public Use
  Company Number: US-MERCK-0511USA02829

PATIENT
  Age: 71 Year
  Sex: Female
  Weight: 89 kg

DRUGS (3)
  1. VIOXX [Suspect]
     Indication: ARTHRITIS
     Route: 048
  2. VIOXX [Suspect]
     Indication: BACK PAIN
     Route: 048
  3. INSULIN [Concomitant]
     Route: 065

REACTIONS (11)
  - CORONARY ARTERY DISEASE [None]
  - CORONARY ARTERY OCCLUSION [None]
  - CORONARY ARTERY RESTENOSIS [None]
  - DEPRESSED LEVEL OF CONSCIOUSNESS [None]
  - DIVERTICULUM [None]
  - EYE DISORDER [None]
  - HAEMORRHOIDS [None]
  - LOSS OF CONSCIOUSNESS [None]
  - NAIL OPERATION [None]
  - SHOCK HYPOGLYCAEMIC [None]
  - SICK SINUS SYNDROME [None]
